FAERS Safety Report 6997078-8 (Version None)
Quarter: 2010Q3

REPORT INFORMATION
  Report Type: 
  Country: None (occurrence: None)
  Receive Date: 20100918
  Receipt Date: 20090908
  Transmission Date: 20110219
  Serious: No
  Sender: FDA-Public Use
  Company Number: US-WYE-H10921409

PATIENT
  Sex: Female
  Weight: 67.19 kg

DRUGS (2)
  1. PREMPRO [Suspect]
     Indication: HORMONE REPLACEMENT THERAPY
     Dosage: 0.45MG QD THEN 0.3MG/1.5MG QD
     Route: 048
     Dates: start: 20070101
  2. VITAMIN D [Concomitant]

REACTIONS (4)
  - DRUG EFFECT DECREASED [None]
  - PRODUCT QUALITY ISSUE [None]
  - RESTLESSNESS [None]
  - VAGINAL HAEMORRHAGE [None]
